FAERS Safety Report 7524077-X (Version None)
Quarter: 2011Q2

REPORT INFORMATION
  Report Type: 
  Country: None (occurrence: None)
  Receive Date: 20110606
  Receipt Date: 20110524
  Transmission Date: 20111010
  Serious: Yes (Other)
  Sender: FDA-Public Use
  Company Number: AU-BIOGENIDEC-2010BI027806

PATIENT
  Age: 36 Year
  Sex: Female
  Weight: 52 kg

DRUGS (3)
  1. TYSABRI [Suspect]
     Indication: PRODUCT USED FOR UNKNOWN INDICATION
     Route: 042
     Dates: start: 20080626, end: 20100310
  2. TYSABRI [Suspect]
     Route: 042
     Dates: start: 20100920
  3. TYSABRI [Suspect]
     Route: 042
     Dates: start: 20101018

REACTIONS (2)
  - PRE-ECLAMPSIA [None]
  - MYELITIS TRANSVERSE [None]
